FAERS Safety Report 11309767 (Version 1)
Quarter: 2015Q3

REPORT INFORMATION
  Report Type: Spontaneous
  Country: DE (occurrence: DE)
  Receive Date: 20150724
  Receipt Date: 20150724
  Transmission Date: 20151125
  Serious: Yes (Other)
  Sender: FDA-Public Use
  Company Number: DE-TEVA-579534GER

PATIENT
  Age: 60 Year
  Sex: Female

DRUGS (1)
  1. NITROFURANTOIN-RATIOPHARM 100 MG RETARDKAPSELN [Suspect]
     Active Substance: NITROFURANTOIN
     Indication: URINARY TRACT INFECTION
     Dosage: 100 MILLIGRAM DAILY;
     Route: 048
     Dates: start: 20150713, end: 20150713

REACTIONS (14)
  - Mucosal exfoliation [Recovered/Resolved]
  - Pruritus [Recovered/Resolved]
  - Tremor [Recovered/Resolved]
  - Nausea [Recovered/Resolved]
  - Asthenia [Recovered/Resolved]
  - Respiratory distress [Recovered/Resolved]
  - Gait disturbance [Recovered/Resolved]
  - Dizziness [Recovered/Resolved]
  - Tachycardia [Recovered/Resolved]
  - Fatigue [Recovered/Resolved]
  - Dry mouth [Recovered/Resolved]
  - Abdominal tenderness [Recovered/Resolved]
  - Headache [Recovered/Resolved]
  - Blood pressure fluctuation [Recovered/Resolved]

NARRATIVE: CASE EVENT DATE: 20150713
